FAERS Safety Report 21069902 (Version 1)
Quarter: 2022Q3

REPORT INFORMATION
  Report Type: Spontaneous
  Country: US (occurrence: US)
  Receive Date: 20220712
  Receipt Date: 20220712
  Transmission Date: 20221027
  Serious: No
  Sender: FDA-Public Use
  Company Number: US-ASTELLAS-2022US021509

PATIENT
  Sex: Male

DRUGS (1)
  1. MYRBETRIQ [Suspect]
     Active Substance: MIRABEGRON
     Indication: Product used for unknown indication
     Dosage: ONCE DAILY (HALF TABLET OF 50 MG)
     Route: 065

REACTIONS (3)
  - Product prescribing error [Unknown]
  - Wrong technique in product usage process [Unknown]
  - Expired product administered [Unknown]
